FAERS Safety Report 17404294 (Version 2)
Quarter: 2020Q2

REPORT INFORMATION
  Report Type: Spontaneous
  Country: JP (occurrence: JP)
  Receive Date: 20200211
  Receipt Date: 20200413
  Transmission Date: 20200713
  Serious: Yes (Other)
  Sender: FDA-Public Use
  Company Number: JP-BRISTOL-MYERS SQUIBB COMPANY-BMS-2020-010120

PATIENT

DRUGS (2)
  1. EMPLICITI [Suspect]
     Active Substance: ELOTUZUMAB
     Indication: PLASMA CELL MYELOMA
     Dosage: 10 MILLIGRAM/KILOGRAM, QWK
     Route: 041
     Dates: start: 20200108
  2. POMALYST [Concomitant]
     Active Substance: POMALIDOMIDE
     Indication: PLASMA CELL MYELOMA
     Dosage: 21 TIMES / MONTH
     Route: 048

REACTIONS (2)
  - Chest discomfort [Recovered/Resolved]
  - Electrocardiogram QT prolonged [Recovered/Resolved]

NARRATIVE: CASE EVENT DATE: 20200204
